FAERS Safety Report 8500841-5 (Version None)
Quarter: 2012Q3

REPORT INFORMATION
  Report Type: 
  Country: None (occurrence: None)
  Receive Date: 20120710
  Receipt Date: 20120625
  Transmission Date: 20120928
  Serious: Yes (Hospitalization, Other)
  Sender: FDA-Public Use
  Company Number: DE-ROCHE-595772

PATIENT
  Sex: Female
  Weight: 65 kg

DRUGS (8)
  1. AVASTIN [Suspect]
     Indication: COLON CANCER METASTATIC
     Route: 042
     Dates: start: 20080414, end: 20081014
  2. FLUOROURACIL [Suspect]
     Indication: COLON CANCER METASTATIC
     Route: 042
     Dates: start: 20080331, end: 20081021
  3. RAMIPRIL [Concomitant]
     Dosage: 1-0-0
     Route: 065
  4. SIMVASTATIN [Concomitant]
     Dosage: 0-0-1
     Route: 065
  5. FUROSEMIDE [Concomitant]
     Dosage: 1-0-0
     Route: 065
  6. METOCLOPRAMIDE [Concomitant]
     Dosage: 20-20-20
     Route: 065
  7. SPIRONOLACTONE [Concomitant]
     Dosage: 1-0-0
     Route: 065
  8. METOPROLOL [Concomitant]
     Dosage: 1-0-0, METOPROLOL SUCCINAT
     Route: 065

REACTIONS (4)
  - CYTOTOXIC CARDIOMYOPATHY [None]
  - HYPOAESTHESIA [None]
  - DYSPNOEA [None]
  - CYANOSIS [None]
